FAERS Safety Report 7572169-1 (Version None)
Quarter: 2011Q2

REPORT INFORMATION
  Report Type: 
  Country: None (occurrence: None)
  Receive Date: 20110624
  Receipt Date: 20110609
  Transmission Date: 20111010
  Serious: Yes (Death, Life-Threatening, Hospitalization, Other)
  Sender: FDA-Public Use
  Company Number: PHHY2010JP73864

PATIENT
  Sex: Male

DRUGS (7)
  1. AFINITOR [Suspect]
     Indication: METASTATIC RENAL CELL CARCINOMA
     Dosage: 10 MG, UNK
     Route: 048
     Dates: start: 20100805, end: 20101002
  2. SUNITINIB MALATE [Suspect]
     Indication: METASTATIC RENAL CELL CARCINOMA
     Dosage: 50 MG, DAILY
     Route: 048
     Dates: start: 20090319, end: 20100721
  3. GABAPENTIN [Concomitant]
     Indication: METASTATIC RENAL CELL CARCINOMA
     Dosage: 400 MG, UNK
     Route: 048
     Dates: end: 20100905
  4. DECADRON [Concomitant]
     Indication: METASTATIC RENAL CELL CARCINOMA
     Dosage: 4 MG, UNK
     Route: 048
     Dates: end: 20100905
  5. LANSOPRAZOLE [Concomitant]
     Indication: METASTATIC RENAL CELL CARCINOMA
     Dosage: 30 MG, UNK
     Route: 048
     Dates: end: 20100905
  6. ZOLPIDEM [Concomitant]
     Indication: METASTATIC RENAL CELL CARCINOMA
     Dosage: 10 MEQ/KG, UNK
     Route: 048
     Dates: end: 20100905
  7. LASIX [Concomitant]
     Indication: METASTATIC RENAL CELL CARCINOMA
     Dosage: 10 MG, UNK
     Route: 048
     Dates: end: 20100905

REACTIONS (14)
  - ALANINE AMINOTRANSFERASE INCREASED [None]
  - BLOOD LACTATE DEHYDROGENASE INCREASED [None]
  - UROGENITAL ATROPHY [None]
  - THYROID ATROPHY [None]
  - ADRENAL ATROPHY [None]
  - ASPARTATE AMINOTRANSFERASE INCREASED [None]
  - BLOOD ALKALINE PHOSPHATASE INCREASED [None]
  - C-REACTIVE PROTEIN INCREASED [None]
  - NEOPLASM MALIGNANT [None]
  - GAMMA-GLUTAMYLTRANSFERASE INCREASED [None]
  - LEUKOENCEPHALOPATHY [None]
  - PANCREATIC ATROPHY [None]
  - HAEMOGLOBIN DECREASED [None]
  - HYPERGLYCAEMIA [None]
